FAERS Safety Report 12766022 (Version 1)
Quarter: 2016Q3

REPORT INFORMATION
  Report Type: Spontaneous
  Country: NO (occurrence: NO)
  Receive Date: 20160921
  Receipt Date: 20160921
  Transmission Date: 20161109
  Serious: Yes (Other)
  Sender: FDA-Public Use
  Company Number: NO-JNJFOC-20160915500

PATIENT
  Age: 61 Year
  Sex: Male

DRUGS (7)
  1. ATACAND PLUS [Concomitant]
     Active Substance: CANDESARTAN CILEXETIL\HYDROCHLOROTHIAZIDE
     Route: 065
  2. BRILIQUE [Concomitant]
     Active Substance: TICAGRELOR
     Route: 065
  3. LIPITOR [Concomitant]
     Active Substance: ATORVASTATIN CALCIUM
     Route: 065
  4. ALBYL-E [Concomitant]
     Active Substance: ASPIRIN\MAGNESIUM OXIDE
     Route: 065
  5. TRAMADOL HEXAL [Concomitant]
     Active Substance: TRAMADOL
     Route: 065
  6. STELARA [Suspect]
     Active Substance: USTEKINUMAB
     Indication: PSORIASIS
     Route: 058
     Dates: start: 201601
  7. SOLOSOC [Concomitant]
     Route: 065

REACTIONS (2)
  - C-reactive protein increased [Unknown]
  - Coombs direct test positive [Not Recovered/Not Resolved]
